FAERS Safety Report 19245765 (Version 1)
Quarter: 2021Q2

REPORT INFORMATION
  Report Type: Spontaneous
  Country: US (occurrence: US)
  Receive Date: 20210512
  Receipt Date: 20210512
  Transmission Date: 20210717
  Serious: Yes (Other)
  Sender: FDA-Public Use
  Company Number: US-AUROBINDO-AUR-APL-2021-019091

PATIENT
  Age: 22 Year
  Sex: Female

DRUGS (3)
  1. PHENYTOIN. [Suspect]
     Active Substance: PHENYTOIN
     Indication: SEIZURE
     Dosage: UNK
     Route: 065
  2. LEVETIRACETAM. [Suspect]
     Active Substance: LEVETIRACETAM
     Indication: SEIZURE
     Dosage: UNK
     Route: 065
  3. LORAZEPAM. [Suspect]
     Active Substance: LORAZEPAM
     Indication: SEIZURE
     Dosage: UNK
     Route: 065

REACTIONS (1)
  - Drug ineffective [Unknown]
